FAERS Safety Report 14270283 (Version 1)
Quarter: 2017Q4

REPORT INFORMATION
  Report Type: Spontaneous
  Country: US (occurrence: US)
  Receive Date: 20171211
  Receipt Date: 20171211
  Transmission Date: 20180321
  Serious: No
  Sender: FDA-Public Use
  Company Number: US-SUNOVION-2017SUN005159

PATIENT
  Age: 59 Year
  Sex: Female

DRUGS (1)
  1. XOPENEX [Suspect]
     Active Substance: LEVALBUTEROL HYDROCHLORIDE
     Indication: ASTHMA

REACTIONS (2)
  - Coagulopathy [Not Recovered/Not Resolved]
  - Contusion [Not Recovered/Not Resolved]
